FAERS Safety Report 14637739 (Version 1)
Quarter: 2018Q1

REPORT INFORMATION
  Report Type: Spontaneous
  Country: IT (occurrence: IT)
  Receive Date: 20180314
  Receipt Date: 20180314
  Transmission Date: 20180509
  Serious: Yes (Other)
  Sender: FDA-Public Use
  Company Number: IT-PFIZER INC-2018101638

PATIENT
  Age: 43 Year
  Sex: Female
  Weight: 48 kg

DRUGS (4)
  1. IBRANCE [Suspect]
     Active Substance: PALBOCICLIB
     Indication: BREAST NEOPLASM
     Dosage: 125 MG, 1X/DAY
     Route: 048
     Dates: start: 20171129, end: 20180116
  2. SYNCHRO LEVELS [Concomitant]
     Dosage: UNK, 3 PUFFS DAILY
     Dates: start: 20171210
  3. LETROZOLE. [Concomitant]
     Active Substance: LETROZOLE
     Indication: BREAST NEOPLASM
     Dosage: 2.5 MG, 1X/DAY
     Route: 048
     Dates: start: 20171129, end: 20180116
  4. ALOE ARBORESCENS SOLIME [Concomitant]
     Dosage: UNK

REACTIONS (1)
  - Transaminases increased [Recovering/Resolving]

NARRATIVE: CASE EVENT DATE: 20180123
